FAERS Safety Report 20152150 (Version 1)
Quarter: 2021Q4

REPORT INFORMATION
  Report Type: Spontaneous
  Country: IT (occurrence: IT)
  Receive Date: 20211206
  Receipt Date: 20211206
  Transmission Date: 20220303
  Serious: Yes (Hospitalization)
  Sender: FDA-Public Use
  Company Number: None

PATIENT
  Age: 19 Year
  Sex: Male

DRUGS (2)
  1. XANAX [Suspect]
     Active Substance: ALPRAZOLAM
     Dosage: 7 G, SINGLE
     Route: 048
     Dates: start: 20211120, end: 20211120
  2. OLANZAPINE [Suspect]
     Active Substance: OLANZAPINE
     Dosage: 22.5 MG, SINGLE
     Route: 048
     Dates: start: 20211120, end: 20211120

REACTIONS (3)
  - Intentional overdose [Unknown]
  - Sopor [Recovering/Resolving]
  - Substance abuse [Recovering/Resolving]

NARRATIVE: CASE EVENT DATE: 20211120
